FAERS Safety Report 6859532-9 (Version None)
Quarter: 2010Q3

REPORT INFORMATION
  Report Type: 
  Country: None (occurrence: None)
  Receive Date: 20100719
  Receipt Date: 20080307
  Transmission Date: 20110219
  Serious: Yes (Other)
  Sender: FDA-Public Use
  Company Number: US-PFIZER INC-2008020600

PATIENT
  Sex: Male
  Weight: 70.454 kg

DRUGS (4)
  1. CHANTIX [Suspect]
     Indication: SMOKING CESSATION THERAPY
     Dosage: EVERYDAY
     Route: 048
     Dates: start: 20070301, end: 20070301
  2. REBIF [Concomitant]
  3. ATENOLOL [Concomitant]
  4. ALPRAZOLAM [Concomitant]

REACTIONS (3)
  - HALLUCINATION, VISUAL [None]
  - HOSTILITY [None]
  - MOOD SWINGS [None]
